FAERS Safety Report 9490418 (Version 1)
Quarter: 2013Q3

REPORT INFORMATION
  Report Type: Spontaneous
  Country: US (occurrence: None)
  Receive Date: 20130827
  Receipt Date: 20130827
  Transmission Date: 20140515
  Serious: Yes (Disabling)
  Sender: FDA-Public Use
  Company Number: None

PATIENT
  Age: 52 None
  Sex: Female

DRUGS (3)
  1. RIZATRIPTAN [Suspect]
     Indication: MIGRAINE
     Route: 048
     Dates: start: 20120713, end: 20130714
  2. SYNTHROID [Concomitant]
  3. MULTI-VITAMIN [Concomitant]

REACTIONS (3)
  - Eye pain [None]
  - Ocular hyperaemia [None]
  - Product substitution issue [None]
